FAERS Safety Report 4368400-6 (Version None)
Quarter: 2004Q2

REPORT INFORMATION
  Report Type: 
  Country: None (occurrence: None)
  Receive Date: 20040602
  Receipt Date: 20040412
  Transmission Date: 20050107
  Serious: Yes (Death)
  Sender: FDA-Public Use
  Company Number: JP-GLAXOSMITHKLINE-B0329846A

PATIENT
  Age: 22 Year
  Sex: Female
  Weight: 57 kg

DRUGS (8)
  1. PAXIL [Suspect]
     Indication: DEPRESSION
     Route: 048
     Dates: start: 20031027
  2. GASMOTIN [Suspect]
     Indication: STOMACH DISCOMFORT
     Dosage: 5MG THREE TIMES PER DAY
     Route: 048
     Dates: start: 20030901, end: 20040404
  3. SERENAL [Concomitant]
     Route: 048
     Dates: start: 20031027
  4. ERISPAN [Concomitant]
     Indication: DEPRESSION
     Route: 048
     Dates: start: 20030901
  5. TOLEDOMIN [Concomitant]
     Indication: DEPRESSION
     Route: 048
     Dates: start: 20030901
  6. RESLIN [Concomitant]
     Indication: DEPRESSION
     Route: 048
     Dates: start: 20030901
  7. RHYTHMY [Concomitant]
     Indication: DEPRESSION
     Route: 048
     Dates: start: 20030901
  8. TETRAMIDE [Concomitant]
     Route: 048
     Dates: start: 20031027

REACTIONS (7)
  - ENCEPHALOPATHY [None]
  - HEPATITIS FULMINANT [None]
  - LIVER DISORDER [None]
  - MALAISE [None]
  - NAUSEA [None]
  - OEDEMA [None]
  - VOMITING [None]
